FAERS Safety Report 5984547-2 (Version None)
Quarter: 2008Q4

REPORT INFORMATION
  Report Type: 
  Country: None (occurrence: None)
  Receive Date: 20081208
  Receipt Date: 20080908
  Transmission Date: 20090506
  Serious: No
  Sender: FDA-Public Use
  Company Number: US-AMGEN-KDL305506

PATIENT
  Sex: Female
  Weight: 72.6 kg

DRUGS (3)
  1. ENBREL [Suspect]
     Indication: PSORIASIS
     Route: 058
     Dates: start: 20080619
  2. INTRAUTERINE CONTRACEPTIVE DEVICE [Concomitant]
  3. ZOLOFT [Concomitant]

REACTIONS (1)
  - AMENORRHOEA [None]
